FAERS Safety Report 16734024 (Version 2)
Quarter: 2020Q2

REPORT INFORMATION
  Report Type: Spontaneous
  Country: US (occurrence: US)
  Receive Date: 20190823
  Receipt Date: 20200407
  Transmission Date: 20200713
  Serious: Yes (Other)
  Sender: FDA-Public Use
  Company Number: US-ALLERGAN-1858384US

PATIENT
  Sex: Male

DRUGS (3)
  1. CELEXA [Suspect]
     Active Substance: CITALOPRAM HYDROBROMIDE
     Dosage: 20 MG, QD
     Route: 048
     Dates: end: 20180411
  2. CLONAZEPAM. [Concomitant]
     Active Substance: CLONAZEPAM
     Indication: ANXIETY
     Dosage: UNK
     Route: 048
  3. CELEXA [Suspect]
     Active Substance: CITALOPRAM HYDROBROMIDE
     Indication: ANXIETY DISORDER
     Dosage: UNK
     Route: 048
     Dates: start: 20180412, end: 20180430

REACTIONS (8)
  - Tooth malformation [Unknown]
  - Speech disorder [Not Recovered/Not Resolved]
  - Off label use [Unknown]
  - Tardive dyskinesia [Recovering/Resolving]
  - Prostatic disorder [Not Recovered/Not Resolved]
  - Emotional distress [Unknown]
  - Tooth extraction [Not Recovered/Not Resolved]
  - Stress [Unknown]

NARRATIVE: CASE EVENT DATE: 2018
